FAERS Safety Report 6998928-1 (Version None)
Quarter: 2010Q3

REPORT INFORMATION
  Report Type: 
  Country: None (occurrence: None)
  Receive Date: 20100920
  Receipt Date: 20070620
  Transmission Date: 20110219
  Serious: Yes (Disabling, Other)
  Sender: FDA-Public Use
  Company Number: US-ASTRAZENECA-2006UW22055

PATIENT
  Sex: Female
  Weight: 90.7 kg

DRUGS (8)
  1. SEROQUEL [Suspect]
     Indication: BIPOLAR DISORDER
     Route: 048
     Dates: start: 20010101
  2. SEROQUEL [Suspect]
     Indication: DEPRESSION
     Route: 048
     Dates: start: 20010101
  3. SEROQUEL [Suspect]
     Dosage: 100-400 MG
     Route: 048
     Dates: start: 20040722
  4. SEROQUEL [Suspect]
     Dosage: 100-400 MG
     Route: 048
     Dates: start: 20040722
  5. ZOLOFT [Concomitant]
     Route: 048
     Dates: start: 20060410
  6. BUPROPION HCL [Concomitant]
     Route: 048
     Dates: start: 20060705
  7. LITHIUM CARBONATE [Concomitant]
     Route: 048
     Dates: start: 20061205
  8. OXYCODONE HCL AND ACETAMINOPHEN [Concomitant]
     Dosage: 5/325 TAKE 1 TABLET
     Route: 048
     Dates: start: 20070616

REACTIONS (2)
  - DIABETES MELLITUS [None]
  - PANCREATITIS [None]
